FAERS Safety Report 13757823 (Version 1)
Quarter: 2017Q3

REPORT INFORMATION
  Report Type: Report from Study
  Country: US (occurrence: US)
  Receive Date: 20170717
  Receipt Date: 20170717
  Transmission Date: 20171127
  Serious: Yes (Other)
  Sender: FDA-Public Use
  Company Number: US-ROCHE-1962381

PATIENT
  Age: 53 Year
  Sex: Female
  Weight: 86.26 kg

DRUGS (3)
  1. KLONOPIN [Suspect]
     Active Substance: CLONAZEPAM
     Indication: SEIZURE
     Dosage: ONGOING:NO
     Route: 065
     Dates: start: 1982, end: 201707
  2. KLONOPIN [Suspect]
     Active Substance: CLONAZEPAM
     Dosage: ONGOING:YES
     Route: 065
     Dates: start: 20170710
  3. PHENYTOIN. [Concomitant]
     Active Substance: PHENYTOIN
     Dosage: ONGOING;YES
     Route: 065

REACTIONS (3)
  - Seizure [Recovered/Resolved]
  - Anger [Not Recovered/Not Resolved]
  - Aggression [Unknown]

NARRATIVE: CASE EVENT DATE: 20170709
